FAERS Safety Report 6609460-9 (Version None)
Quarter: 2010Q1

REPORT INFORMATION
  Report Type: 
  Country: None (occurrence: None)
  Receive Date: 20100212
  Receipt Date: 20091112
  Transmission Date: 20100710
  Serious: No
  Sender: FDA-Public Use
  Company Number: 1000010094

PATIENT
  Age: 22 Year
  Sex: Female

DRUGS (8)
  1. SAVELLA [Suspect]
     Indication: PAIN
     Dosage: 12.5 MG (12.5 MG, 1 IN 1 D), ORAL; SEE IMAGE
     Route: 048
     Dates: start: 20091010, end: 20091010
  2. SAVELLA [Suspect]
     Indication: PAIN
     Dosage: 12.5 MG (12.5 MG, 1 IN 1 D), ORAL; SEE IMAGE
     Route: 048
     Dates: start: 20091011, end: 20091012
  3. SAVELLA [Suspect]
     Indication: PAIN
     Dosage: 12.5 MG (12.5 MG, 1 IN 1 D), ORAL; SEE IMAGE
     Route: 048
     Dates: start: 20091013, end: 20091016
  4. SAVELLA [Suspect]
     Indication: PAIN
     Dosage: 12.5 MG (12.5 MG, 1 IN 1 D), ORAL; SEE IMAGE
     Route: 048
     Dates: start: 20091017
  5. ALLOPURINOL [Concomitant]
  6. IMURAN [Concomitant]
  7. VICODIN [Concomitant]
  8. AMBIEN [Concomitant]

REACTIONS (1)
  - HEART RATE INCREASED [None]
